FAERS Safety Report 11912349 (Version 1)
Quarter: 2016Q1

REPORT INFORMATION
  Report Type: Spontaneous
  Country: IT (occurrence: IT)
  Receive Date: 20160113
  Receipt Date: 20160113
  Transmission Date: 20160526
  Serious: Yes (Death, Hospitalization)
  Sender: FDA-Public Use
  Company Number: IT-ROCHE-1661311

PATIENT
  Age: 84 Year
  Sex: Female

DRUGS (3)
  1. ROCEFIN [Suspect]
     Active Substance: CEFTRIAXONE SODIUM
     Indication: ASTHMA
     Route: 030
     Dates: start: 20151103, end: 20151103
  2. BENTELAN [Concomitant]
     Active Substance: BETAMETHASONE SODIUM PHOSPHATE
     Route: 065
  3. ROCEFIN [Suspect]
     Active Substance: CEFTRIAXONE SODIUM
     Indication: CHRONIC OBSTRUCTIVE PULMONARY DISEASE

REACTIONS (5)
  - Circulatory collapse [Fatal]
  - Dyspnoea [Fatal]
  - Anaphylactic shock [Fatal]
  - Pruritus [Fatal]
  - Drug intolerance [Fatal]

NARRATIVE: CASE EVENT DATE: 20151103
